FAERS Safety Report 17679587 (Version 2)
Quarter: 2020Q2

REPORT INFORMATION
  Report Type: Spontaneous
  Country: US (occurrence: US)
  Receive Date: 20200417
  Receipt Date: 20200611
  Transmission Date: 20200714
  Serious: Yes (Death, Other)
  Sender: FDA-Public Use
  Company Number: US-ALEXION PHARMACEUTICALS INC.-A202005158

PATIENT
  Age: 63 Year
  Sex: Male

DRUGS (3)
  1. SOLIRIS [Suspect]
     Active Substance: ECULIZUMAB
     Indication: PAROXYSMAL NOCTURNAL HAEMOGLOBINURIA
     Dosage: 900 MG, ATLEAST 1 DOSE WITHIN 30 DAYS
     Route: 065
  2. SOLIRIS [Suspect]
     Active Substance: ECULIZUMAB
     Indication: OFF LABEL USE
  3. SOLIRIS [Suspect]
     Active Substance: ECULIZUMAB
     Indication: PROPHYLAXIS

REACTIONS (6)
  - Pneumonia fungal [Fatal]
  - Engraft failure [Unknown]
  - Septic shock [Recovered/Resolved]
  - Off label use [Unknown]
  - Graft versus host disease in gastrointestinal tract [Fatal]
  - Cytomegalovirus infection reactivation [Fatal]
